FAERS Safety Report 8214508-4 (Version None)
Quarter: 2012Q1

REPORT INFORMATION
  Report Type: 
  Country: None (occurrence: None)
  Receive Date: 20120316
  Receipt Date: 20120316
  Transmission Date: 20120608
  Serious: No
  Sender: FDA-Public Use
  Company Number: None

PATIENT
  Age: 46 Year
  Sex: Female

DRUGS (1)
  1. OMNIPAQUE 350 [Suspect]
     Indication: COMPUTERISED TOMOGRAM
     Dosage: 100 ML
     Route: 042
     Dates: start: 20120313, end: 20120313

REACTIONS (3)
  - PRURITUS [None]
  - URTICARIA [None]
  - HYPERSENSITIVITY [None]
